FAERS Safety Report 21377607 (Version 2)
Quarter: 2022Q4

REPORT INFORMATION
  Report Type: Spontaneous
  Country: CN (occurrence: CN)
  Receive Date: 20220926
  Receipt Date: 20221021
  Transmission Date: 20230113
  Serious: Yes (Other)
  Sender: FDA-Public Use
  Company Number: CN-BAYER-2022A111010

PATIENT
  Age: 22 Year
  Sex: Female

DRUGS (1)
  1. YASMIN [Suspect]
     Active Substance: DROSPIRENONE\ETHINYL ESTRADIOL
     Indication: Menstrual cycle management
     Dosage: UNK
     Route: 048
     Dates: start: 20220716, end: 20220805

REACTIONS (4)
  - Multiple sclerosis [Recovering/Resolving]
  - Myelitis [Recovering/Resolving]
  - Pain in extremity [Recovering/Resolving]
  - Product use in unapproved indication [None]

NARRATIVE: CASE EVENT DATE: 20220716
